FAERS Safety Report 25363243 (Version 1)
Quarter: 2025Q2

REPORT INFORMATION
  Report Type: Report from Study
  Country: CA (occurrence: CA)
  Receive Date: 20250527
  Receipt Date: 20250527
  Transmission Date: 20250717
  Serious: Yes (Other)
  Sender: GILEAD
  Company Number: CA-GILEAD-2025-0714837

PATIENT
  Sex: Male

DRUGS (13)
  1. EMTRICITABINE\TENOFOVIR DISOPROXIL FUMARATE [Suspect]
     Active Substance: EMTRICITABINE\TENOFOVIR DISOPROXIL FUMARATE
     Indication: HIV infection
     Dosage: 1 TAB ONCE A DAY 200 MG
     Route: 065
     Dates: start: 20080410, end: 20161124
  2. INTELENCE [Concomitant]
     Active Substance: ETRAVIRINE
     Indication: HIV infection
  3. ACYCLOVIR [Concomitant]
     Active Substance: ACYCLOVIR
     Indication: HIV infection
  4. PREZCOBIX [Concomitant]
     Active Substance: COBICISTAT\DARUNAVIR ETHANOLATE
     Indication: HIV infection
  5. ISENTRESS [Concomitant]
     Active Substance: RALTEGRAVIR POTASSIUM
     Indication: HIV infection
  6. MARAVIROC [Concomitant]
     Active Substance: MARAVIROC
     Indication: HIV infection
  7. LIPITOR [Concomitant]
     Active Substance: ATORVASTATIN CALCIUM
     Indication: Blood cholesterol abnormal
  8. CONCERTA [Concomitant]
     Active Substance: METHYLPHENIDATE HYDROCHLORIDE
     Indication: Attention deficit hyperactivity disorder
  9. PANTOPRAZOLE [Concomitant]
     Active Substance: PANTOPRAZOLE
     Indication: Gastrointestinal disorder
  10. ZOPICLONE [Concomitant]
     Active Substance: ZOPICLONE
     Indication: Sleep disorder
  11. RESTASIS [Concomitant]
     Active Substance: CYCLOSPORINE
     Indication: Dry eye
  12. ATIVAN [Concomitant]
     Active Substance: LORAZEPAM
     Indication: Anxiety
  13. ANDROGEL [Concomitant]
     Active Substance: TESTOSTERONE
     Indication: Blood testosterone abnormal

REACTIONS (1)
  - Osteoporosis [Unknown]
